FAERS Safety Report 16753654 (Version 1)
Quarter: 2019Q3

REPORT INFORMATION
  Report Type: Spontaneous
  Country: RU (occurrence: RU)
  Receive Date: 20190829
  Receipt Date: 20190829
  Transmission Date: 20191005
  Serious: Yes (Other)
  Sender: FDA-Public Use
  Company Number: RU-EMD SERONO-7042049

PATIENT
  Age: 22 Year
  Sex: Female

DRUGS (3)
  1. REBIF [Suspect]
     Active Substance: INTERFERON BETA-1A
     Indication: MULTIPLE SCLEROSIS
     Dates: start: 200908
  2. REGULON                            /00093201/ [Concomitant]
     Dates: start: 201010, end: 201010
  3. MEDICATIONS PROVOKING MENSES [Concomitant]
     Dates: start: 201011

REACTIONS (4)
  - Abortion induced [Unknown]
  - Foetal exposure during pregnancy [Unknown]
  - Infertility female [Unknown]
  - Pelvic pain [Unknown]

NARRATIVE: CASE EVENT DATE: 201012
